FAERS Safety Report 6945531-5 (Version None)
Quarter: 2010Q3

REPORT INFORMATION
  Report Type: 
  Country: None (occurrence: None)
  Receive Date: 20100827
  Receipt Date: 20100819
  Transmission Date: 20110219
  Serious: Yes (Hospitalization)
  Sender: FDA-Public Use
  Company Number: FR-ROCHE-722311

PATIENT
  Sex: Female

DRUGS (4)
  1. TAMIFLU [Suspect]
     Route: 048
     Dates: start: 20100102, end: 20100103
  2. IBUPROFEN [Suspect]
     Route: 048
     Dates: start: 20100102, end: 20100105
  3. ACETAMINOPHEN [Suspect]
     Route: 048
     Dates: start: 20100102, end: 20100104
  4. PROFENID [Suspect]
     Route: 030
     Dates: start: 20100118, end: 20100118

REACTIONS (1)
  - NEUTROPENIA [None]
